FAERS Safety Report 17076366 (Version 1)
Quarter: 2019Q4

REPORT INFORMATION
  Report Type: Spontaneous
  Country: AU (occurrence: AU)
  Receive Date: 20191126
  Receipt Date: 20191126
  Transmission Date: 20200122
  Serious: Yes (Other)
  Sender: FDA-Public Use
  Company Number: AU-TASMAN PHARMA, INC.-2019TSM00045

PATIENT
  Sex: Male
  Weight: 56 kg

DRUGS (4)
  1. CLOZAPINE. [Suspect]
     Active Substance: CLOZAPINE
     Dosage: 125 MG
     Dates: start: 20190815, end: 2019
  2. CLOZAPINE. [Suspect]
     Active Substance: CLOZAPINE
     Dosage: 100 MG
     Dates: start: 20190911, end: 2019
  3. CLOZAPINE. [Suspect]
     Active Substance: CLOZAPINE
     Dosage: 25 MG
     Dates: start: 20191109, end: 20191113
  4. CLOZAPINE. [Suspect]
     Active Substance: CLOZAPINE
     Dosage: 125 MG
     Dates: start: 20190907, end: 2019

REACTIONS (3)
  - Unevaluable event [Unknown]
  - Gastric cancer [Unknown]
  - Treatment noncompliance [Unknown]

NARRATIVE: CASE EVENT DATE: 20191113
